FAERS Safety Report 18173759 (Version 2)
Quarter: 2020Q4

REPORT INFORMATION
  Report Type: Other
  Country: US (occurrence: US)
  Receive Date: 20200820
  Receipt Date: 20201221
  Transmission Date: 20210113
  Serious: Yes (Death)
  Sender: FDA-Public Use
  Company Number: US-INTERCEPT-PM2020001678

PATIENT
  Age: 36 Year
  Sex: Female

DRUGS (1)
  1. OCALIVA [Suspect]
     Active Substance: OBETICHOLIC ACID
     Indication: PRIMARY BILIARY CHOLANGITIS
     Dosage: 10 MG, QD
     Route: 048
     Dates: start: 201703

REACTIONS (1)
  - Death [Fatal]

NARRATIVE: CASE EVENT DATE: 20200404
